FAERS Safety Report 8911613 (Version 2)
Quarter: 2012Q4

REPORT INFORMATION
  Report Type: 
  Country: US (occurrence: US)
  Receive Date: 20121115
  Receipt Date: 20121203
  Transmission Date: 20130627
  Serious: Yes (Hospitalization, Other)
  Sender: FDA-Public Use
  Company Number: US-BAXTER-2012BAX023507

PATIENT
  Sex: Male

DRUGS (1)
  1. DIANEAL LOW CALCIUM [Suspect]
     Indication: END STAGE RENAL DISEASE (ESRD)
     Route: 033

REACTIONS (2)
  - Cardiac disorder [Unknown]
  - Intervertebral disc disorder [Unknown]
